FAERS Safety Report 13342377 (Version 3)
Quarter: 2017Q3

REPORT INFORMATION
  Report Type: Report from Study
  Country: GE (occurrence: GE)
  Receive Date: 20170316
  Receipt Date: 20170703
  Transmission Date: 20171127
  Serious: Yes (Other)
  Sender: FDA-Public Use
  Company Number: GE-TEVA-748542ISR

PATIENT
  Age: 2 Year
  Sex: Male
  Weight: 14.1 kg

DRUGS (7)
  1. NEUPOGEN [Suspect]
     Active Substance: FILGRASTIM
     Indication: NEUTROPENIA
     Dosage: LAST DOSE PRIOR TO AE: 6-MAR-2017
     Route: 058
     Dates: start: 20170209
  2. VINCRISTIN [Suspect]
     Active Substance: VINCRISTINE
     Dosage: .9 MILLIGRAM DAILY; LAST DOSE PRIOR TO AE: 01-MAR-2017
     Route: 042
     Dates: start: 20170301
  3. IFOSFAMIDE. [Suspect]
     Active Substance: IFOSFAMIDE
     Dosage: 1800 MILLIGRAM DAILY; LAST DOSE PRIOR TO AE: 02-MAR-2017
     Route: 042
     Dates: start: 20170301
  4. DOXORUBICIN [Suspect]
     Active Substance: DOXORUBICIN
     Dosage: 18 MILLIGRAM DAILY; LAST DOSE PRIOR TO AE: 02-MAR-2017
     Route: 042
     Dates: start: 20170301
  5. LONQUEX [Suspect]
     Active Substance: LIPEGFILGRASTIM
     Indication: NEUTROPENIA
     Dosage: 0 MILLIGRAM DAILY;
  6. ACTINOMYCIN D [Suspect]
     Active Substance: DACTINOMYCIN
     Dosage: .9 MILLIGRAM DAILY; LAST DOSE PRIOR TO AE: 01-MAR-2017
     Route: 042
     Dates: start: 20170301
  7. ZOFRAN [Concomitant]
     Active Substance: ONDANSETRON HYDROCHLORIDE
     Indication: NAUSEA
     Dosage: 9 MILLIGRAM DAILY;
     Route: 042
     Dates: start: 20170301, end: 20170304

REACTIONS (2)
  - Leukopenia [Recovered/Resolved]
  - Febrile neutropenia [Recovered/Resolved]

NARRATIVE: CASE EVENT DATE: 20170307
